FAERS Safety Report 19823555 (Version 1)
Quarter: 2021Q3

REPORT INFORMATION
  Report Type: Spontaneous
  Country: US (occurrence: US)
  Receive Date: 20210913
  Receipt Date: 20210913
  Transmission Date: 20211014
  Serious: Yes (Hospitalization)
  Sender: FDA-Public Use
  Company Number: US-TEVA-2021-US-1939558

PATIENT
  Age: 59 Year
  Sex: Male

DRUGS (4)
  1. OBINUTUZUMAB. [Suspect]
     Active Substance: OBINUTUZUMAB
     Indication: HODGKIN^S DISEASE
  2. G?BENDA (BENDAMUSTINE) [Suspect]
     Active Substance: BENDAMUSTINE
     Indication: HODGKIN^S DISEASE
  3. OBINUTUZUMAB. [Suspect]
     Active Substance: OBINUTUZUMAB
     Indication: FOLLICULAR LYMPHOMA STAGE III
     Dosage: (TWO OF FIVE CYCLES)
     Route: 065
  4. G?BENDA (BENDAMUSTINE) [Suspect]
     Active Substance: BENDAMUSTINE
     Indication: FOLLICULAR LYMPHOMA STAGE III
     Dosage: (TWO OF FIVE CYCLES)
     Route: 042

REACTIONS (5)
  - COVID-19 pneumonia [Unknown]
  - COVID-19 [Recovered/Resolved]
  - Pancytopenia [Not Recovered/Not Resolved]
  - Product use issue [Unknown]
  - Hypogammaglobulinaemia [Not Recovered/Not Resolved]
